FAERS Safety Report 25374162 (Version 2)
Quarter: 2025Q2

REPORT INFORMATION
  Report Type: Spontaneous
  Country: ES (occurrence: ES)
  Receive Date: 20250529
  Receipt Date: 20250604
  Transmission Date: 20250716
  Serious: Yes (Life-Threatening, Hospitalization, Other)
  Sender: ALEXION PHARMACEUTICALS
  Company Number: ES-AstraZeneca-CH-00877799AM

PATIENT
  Age: 68 Year
  Weight: 70 kg

DRUGS (2)
  1. ROFLUMILAST [Suspect]
     Active Substance: ROFLUMILAST
     Indication: Psoriasis
     Dosage: 250 MILLIGRAM, QD
  2. CYCLOSPORINE [Concomitant]
     Active Substance: CYCLOSPORINE
     Route: 065

REACTIONS (4)
  - Glucose-6-phosphate dehydrogenase deficiency [Recovered/Resolved]
  - Haemolysis [Unknown]
  - Off label use [Unknown]
  - Jaundice [Unknown]
